FAERS Safety Report 17712112 (Version 1)
Quarter: 2020Q2

REPORT INFORMATION
  Report Type: Spontaneous
  Country: JP (occurrence: JP)
  Receive Date: 20200427
  Receipt Date: 20200427
  Transmission Date: 20200714
  Serious: Yes (Hospitalization)
  Sender: FDA-Public Use
  Company Number: JP-NATCO PHARMA-2020NAT00016

PATIENT
  Age: 70 Year
  Sex: Female

DRUGS (3)
  1. TRIHEXYPHENIDYL HYDROCHLORIDE. [Suspect]
     Active Substance: TRIHEXYPHENIDYL HYDROCHLORIDE
     Dosage: 24 MG, 1X/DAY
     Route: 048
  2. TRIHEXYPHENIDYL HYDROCHLORIDE. [Suspect]
     Active Substance: TRIHEXYPHENIDYL HYDROCHLORIDE
     Indication: TORTICOLLIS
     Dosage: UNK
     Route: 048
  3. TRIHEXYPHENIDYL HYDROCHLORIDE. [Suspect]
     Active Substance: TRIHEXYPHENIDYL HYDROCHLORIDE
     Dosage: 12 MG, 1X/DAY
     Route: 048

REACTIONS (1)
  - Chorea [Recovered/Resolved]
